FAERS Safety Report 14755664 (Version 1)
Quarter: 2018Q2

REPORT INFORMATION
  Report Type: Spontaneous
  Country: US (occurrence: US)
  Receive Date: 20180407
  Receipt Date: 20180407
  Transmission Date: 20180711
  Serious: Yes (Disabling)
  Sender: FDA-Public Use
  Company Number: None

PATIENT
  Age: 55 Year
  Sex: Female
  Weight: 65.25 kg

DRUGS (1)
  1. LEVAQUIN [Suspect]
     Active Substance: LEVOFLOXACIN
     Indication: PNEUMONIA
     Dosage: ?          QUANTITY:10 TABLET(S);?
     Route: 048

REACTIONS (9)
  - Tendon rupture [None]
  - Feeling abnormal [None]
  - Nausea [None]
  - Rotator cuff syndrome [None]
  - Migraine [None]
  - Hallucination [None]
  - Nightmare [None]
  - Rheumatoid arthritis [None]
  - Vomiting [None]

NARRATIVE: CASE EVENT DATE: 20160515
